FAERS Safety Report 7321143-9 (Version None)
Quarter: 2011Q1

REPORT INFORMATION
  Report Type: 
  Country: None (occurrence: None)
  Receive Date: 20110228
  Receipt Date: 20110214
  Transmission Date: 20110831
  Serious: Yes (Other)
  Sender: FDA-Public Use
  Company Number: US-CEPHALON-2011000714

PATIENT
  Sex: Female
  Weight: 48 kg

DRUGS (4)
  1. VITAMIN D [Concomitant]
  2. ESKALITH [Concomitant]
  3. NUVIGIL [Suspect]
     Indication: HYPERSOMNIA
     Route: 048
     Dates: start: 20110213
  4. LYRICA [Concomitant]

REACTIONS (3)
  - GLAUCOMA [None]
  - ABDOMINAL DISCOMFORT [None]
  - PRODUCT QUALITY ISSUE [None]
